FAERS Safety Report 6456651-6 (Version None)
Quarter: 2009Q4

REPORT INFORMATION
  Report Type: 
  Country: None (occurrence: None)
  Receive Date: 20091125
  Receipt Date: 20091113
  Transmission Date: 20100525
  Serious: Yes (Other)
  Sender: FDA-Public Use
  Company Number: CN-ELI_LILLY_AND_COMPANY-CN200904001266

PATIENT
  Age: 79 Year
  Sex: Female
  Weight: 60.5 kg

DRUGS (4)
  1. ALIMTA [Suspect]
     Indication: NON-SMALL CELL LUNG CANCER
     Dosage: 750 MG, ONCE
     Route: 042
     Dates: start: 20090325, end: 20090325
  2. FOLIC ACID [Concomitant]
     Indication: SUPPLEMENTATION THERAPY
  3. VITAMIN B-12 [Concomitant]
     Indication: SUPPLEMENTATION THERAPY
  4. DEXAMETHASONE [Concomitant]

REACTIONS (3)
  - CEREBRAL INFARCTION [None]
  - FACE OEDEMA [None]
  - FACIAL PALSY [None]
